FAERS Safety Report 8131993-7 (Version None)
Quarter: 2012Q1

REPORT INFORMATION
  Report Type: 
  Country: None (occurrence: None)
  Receive Date: 20120213
  Receipt Date: 20120130
  Transmission Date: 20120608
  Serious: Yes (Other)
  Sender: FDA-Public Use
  Company Number: US-SANOFI-AVENTIS-2011SA085268

PATIENT
  Age: 77 Year
  Sex: Female
  Weight: 62 kg

DRUGS (6)
  1. ALLEGRA [Suspect]
     Route: 048
     Dates: start: 20110101
  2. ALLEGRA [Suspect]
     Route: 048
     Dates: end: 20111201
  3. ALLEGRA [Suspect]
  4. CALCIUM [Concomitant]
  5. FEXOFENADINE HYDROCHLORIDE [Suspect]
     Route: 065
  6. ALLEGRA [Suspect]
     Route: 048
     Dates: start: 20110101

REACTIONS (5)
  - PRODUCT QUALITY ISSUE [None]
  - NASAL DISCOMFORT [None]
  - DRUG INEFFECTIVE [None]
  - FRACTURE [None]
  - SNEEZING [None]
